FAERS Safety Report 12080069 (Version 2)
Quarter: 2016Q2

REPORT INFORMATION
  Report Type: Spontaneous
  Country: DE (occurrence: DE)
  Receive Date: 20160216
  Receipt Date: 20160404
  Transmission Date: 20160815
  Serious: Yes (Other)
  Sender: FDA-Public Use
  Company Number: PHHY2015DE089354

PATIENT
  Age: 53 Year
  Sex: Female
  Weight: 55 kg

DRUGS (4)
  1. NEBILET [Concomitant]
     Active Substance: NEBIVOLOL
     Indication: HYPERTENSION
     Dosage: 10 MG, QD
     Route: 048
     Dates: start: 2000
  2. L-THYROXIN [Concomitant]
     Active Substance: LEVOTHYROXINE SODIUM
     Indication: HYPOTHYROIDISM
     Dosage: 75 UG, UNK
     Route: 048
     Dates: start: 1993
  3. LAFAMME [Concomitant]
     Indication: MENOPAUSAL SYMPTOMS
     Dosage: 1 MG OR 2 MG, QD
     Route: 048
     Dates: start: 2011
  4. RASILEZ [Suspect]
     Active Substance: ALISKIREN
     Indication: HYPERTENSION
     Dosage: 150 MG, QD
     Route: 048
     Dates: start: 20140428, end: 20150327

REACTIONS (4)
  - Blood pressure increased [Recovered/Resolved]
  - Palpitations [Unknown]
  - Heart rate increased [Unknown]
  - Renin increased [Recovered/Resolved]

NARRATIVE: CASE EVENT DATE: 20150429
